FAERS Safety Report 9685993 (Version 1)
Quarter: 2013Q4

REPORT INFORMATION
  Report Type: Spontaneous
  Country: US (occurrence: US)
  Receive Date: 20131113
  Receipt Date: 20131113
  Transmission Date: 20140711
  Serious: No
  Sender: FDA-Public Use
  Company Number: US-ALLERGAN-1306240US

PATIENT
  Sex: Female

DRUGS (3)
  1. COMBIGAN[R] [Suspect]
     Indication: PRODUCT USED FOR UNKNOWN INDICATION
     Dosage: 2 GTT, UNK
     Route: 047
  2. XALATAN                            /01297301/ [Concomitant]
     Indication: GLAUCOMA
     Dosage: 2 GTT, QHS
     Route: 047
  3. SYSTANE [Concomitant]
     Indication: DRY EYE

REACTIONS (3)
  - Eye inflammation [Unknown]
  - Iritis [Unknown]
  - Eye pain [Not Recovered/Not Resolved]
